FAERS Safety Report 17886486 (Version 1)
Quarter: 2020Q2

REPORT INFORMATION
  Report Type: Spontaneous
  Country: US (occurrence: US)
  Receive Date: 20200611
  Receipt Date: 20200611
  Transmission Date: 20200714
  Serious: Yes (Other)
  Sender: FDA-Public Use
  Company Number: US-ELI_LILLY_AND_COMPANY-US202006002966

PATIENT
  Sex: Male

DRUGS (6)
  1. HUMALOG [Suspect]
     Active Substance: INSULIN LISPRO
     Dosage: 45 U, OTHER (35-45 UNITS PER MEAL, 3 TIMES A DAY)
     Route: 058
  2. OZEMPIC [Concomitant]
     Active Substance: SEMAGLUTIDE
     Indication: DIABETES MELLITUS
     Dosage: 0.5 MG, WEEKLY (1/W)
  3. TRESIBA [Concomitant]
     Active Substance: INSULIN DEGLUDEC
     Indication: DIABETES MELLITUS
     Dosage: 40 U, EACH MORNING (IN AM)
  4. HUMALOG [Suspect]
     Active Substance: INSULIN LISPRO
     Indication: DIABETES MELLITUS
     Dosage: 45 U, OTHER (35-45 UNITS PER MEAL, 3 TIMES A DAY)
     Route: 058
  5. HUMALOG KWIKPEN [Suspect]
     Active Substance: INSULIN LISPRO
     Indication: DIABETES MELLITUS
     Dosage: 45 U, OTHER (35-45 UNITS PER MEAL, 35-45 UNITS PER MEAL, THREE TIMES A DAY)
     Route: 058
  6. HUMALOG KWIKPEN [Suspect]
     Active Substance: INSULIN LISPRO
     Dosage: 45 U, OTHER (35-45 UNITS PER MEAL, 35-45 UNITS PER MEAL, THREE TIMES A DAY)
     Route: 058

REACTIONS (3)
  - Blindness [Recovering/Resolving]
  - Tremor [Recovering/Resolving]
  - Injury associated with device [Recovering/Resolving]
